FAERS Safety Report 6064103-0 (Version None)
Quarter: 2009Q1

REPORT INFORMATION
  Report Type: 
  Country: None (occurrence: None)
  Receive Date: 20090203
  Receipt Date: 20090203
  Transmission Date: 20090719
  Serious: Yes (Hospitalization)
  Sender: FDA-Public Use
  Company Number: None

PATIENT
  Age: 66 Year
  Sex: Male
  Weight: 61.6892 kg

DRUGS (3)
  1. OXALIPLATIN [Suspect]
     Indication: HEAD AND NECK CANCER
     Dosage: 130 MG/M2
     Dates: start: 20080403, end: 20080523
  2. DOCETAXEL [Suspect]
     Indication: HEAD AND NECK CANCER
     Dosage: 60 MG/M2
     Dates: start: 20080403, end: 20080523
  3. ERBITUX [Concomitant]

REACTIONS (4)
  - ABSCESS BACTERIAL [None]
  - CORYNEBACTERIUM INFECTION [None]
  - COUGH [None]
  - SEPSIS [None]
